FAERS Safety Report 10191772 (Version 1)
Quarter: 2014Q2

REPORT INFORMATION
  Report Type: Spontaneous
  Country: JP (occurrence: JP)
  Receive Date: 20140523
  Receipt Date: 20140523
  Transmission Date: 20141212
  Serious: Yes (Hospitalization, Other)
  Sender: FDA-Public Use
  Company Number: JP-WATSON-2014-10749

PATIENT
  Age: 20 Year
  Sex: Male

DRUGS (10)
  1. TACROLIMUS (UNKNOWN) [Suspect]
     Indication: PROPHYLAXIS AGAINST GRAFT VERSUS HOST DISEASE
     Dosage: 1.5 MG, DAILY, 0.03 MG/KG/DAY
     Route: 042
  2. TACROLIMUS (UNKNOWN) [Suspect]
     Dosage: 5 MG, DAILY
     Route: 048
  3. MYCOPHENOLATE MOFETIL [Concomitant]
     Indication: PROPHYLAXIS AGAINST GRAFT VERSUS HOST DISEASE
     Dosage: 1500 MG, DAILY, 25 MG/KG, DAILY, ADMISTERED 3 TIMES A DAY
     Route: 048
  4. MYCOPHENOLATE MOFETIL [Concomitant]
     Dosage: 750 MG, DAILY
     Route: 065
  5. FLUCONAZOLE [Concomitant]
     Indication: ANTIFUNGAL PROPHYLAXIS
     Dosage: UNKNOWN
     Route: 065
  6. URSODEOXYCHOLIC ACID [Concomitant]
     Indication: ANTIFUNGAL PROPHYLAXIS
     Dosage: UNKNOWN
     Route: 065
  7. PREDNISOLONE [Concomitant]
     Indication: PRE-ENGRAFTMENT IMMUNE REACTION
     Dosage: 60 MG, UNK, (1 MG/KG)
     Route: 065
  8. GRANULOCYTE COLONY-STIMULATING FACTOR NOS [Concomitant]
     Indication: PRODUCT USED FOR UNKNOWN INDICATION
     Dosage: UNK
     Route: 065
  9. FOSCARNET [Concomitant]
     Indication: HUMAN HERPESVIRUS 6 INFECTION
     Dosage: UNK
     Route: 065
  10. MEROPENEM [Concomitant]
     Indication: PRE-ENGRAFTMENT IMMUNE REACTION
     Dosage: UNK
     Route: 065

REACTIONS (1)
  - Inappropriate antidiuretic hormone secretion [Recovering/Resolving]
